FAERS Safety Report 5164810-8 (Version None)
Quarter: 2006Q4

REPORT INFORMATION
  Report Type: 
  Country: None (occurrence: None)
  Receive Date: 20061205
  Receipt Date: 20061130
  Transmission Date: 20070319
  Serious: Yes (Other)
  Sender: FDA-Public Use
  Company Number: 2006UW26829

PATIENT
  Age: 52 Year
  Sex: Female

DRUGS (10)
  1. SEROQUEL [Suspect]
     Indication: BIPOLAR I DISORDER
     Route: 048
  2. TAMOXIFEN CITRATE [Concomitant]
  3. NEXIUM [Concomitant]
  4. OXYCONTIN [Concomitant]
  5. DIAZEPAM [Concomitant]
  6. CARBAMAZEPINE [Concomitant]
  7. SYNTHROID [Concomitant]
  8. LOTENSIN [Concomitant]
  9. TOPROL-XL [Concomitant]
  10. MIRALAX [Concomitant]

REACTIONS (2)
  - LIMB INJURY [None]
  - MALAISE [None]
